FAERS Safety Report 7435963-3 (Version None)
Quarter: 2011Q2

REPORT INFORMATION
  Report Type: 
  Country: None (occurrence: None)
  Receive Date: 20110425
  Receipt Date: 20110421
  Transmission Date: 20111010
  Serious: Yes (Other)
  Sender: FDA-Public Use
  Company Number: US-PFIZER INC-2011071550

PATIENT
  Sex: Female
  Weight: 63.492 kg

DRUGS (4)
  1. ADVIL COLD AND SINUS [Suspect]
     Indication: COUGH
     Dosage: 200/30 MG/MG, 3X/DAY
     Route: 048
     Dates: start: 20110329
  2. ADVIL COLD AND SINUS [Suspect]
     Indication: NASOPHARYNGITIS
  3. ADVIL COLD AND SINUS [Suspect]
     Indication: NASAL CONGESTION
  4. GABAPENTIN [Suspect]
     Dosage: UNK

REACTIONS (6)
  - DYSPHAGIA [None]
  - DECREASED APPETITE [None]
  - DYSGEUSIA [None]
  - ILL-DEFINED DISORDER [None]
  - HYPOAESTHESIA [None]
  - NASOPHARYNGITIS [None]
